FAERS Safety Report 10451606 (Version 1)
Quarter: 2014Q3

REPORT INFORMATION
  Report Type: Spontaneous
  Country: IL (occurrence: IL)
  Receive Date: 20140914
  Receipt Date: 20140914
  Transmission Date: 20150326
  Serious: Yes (Other)
  Sender: FDA-Public Use
  Company Number: IL-MYLAN-2014M1004291

PATIENT

DRUGS (1)
  1. DOXYCYCLINE. [Suspect]
     Active Substance: DOXYCYCLINE
     Route: 065

REACTIONS (4)
  - Chest pain [Unknown]
  - Weight decreased [Unknown]
  - Oesophagitis [Recovered/Resolved]
  - Dysphagia [Unknown]
